FAERS Safety Report 16568224 (Version 2)
Quarter: 2019Q3

REPORT INFORMATION
  Report Type: Report from Study
  Country: FR (occurrence: FR)
  Receive Date: 20190712
  Receipt Date: 20190725
  Transmission Date: 20191004
  Serious: Yes (Death, Hospitalization, Other)
  Sender: FDA-Public Use
  Company Number: FR-SHIRE-FR201900445

PATIENT

DRUGS (16)
  1. VALGANCICLOVIR. [Concomitant]
     Active Substance: VALGANCICLOVIR
     Indication: PRODUCT USED FOR UNKNOWN INDICATION
     Route: 065
  2. HYDROCORTISONE. [Concomitant]
     Active Substance: HYDROCORTISONE
     Indication: PRODUCT USED FOR UNKNOWN INDICATION
     Route: 042
  3. AMIKACIN. [Concomitant]
     Active Substance: AMIKACIN
     Indication: PRODUCT USED FOR UNKNOWN INDICATION
     Route: 065
  4. MEROPENEM. [Concomitant]
     Active Substance: MEROPENEM
     Indication: PRODUCT USED FOR UNKNOWN INDICATION
     Route: 065
  5. RIBAVIRIN. [Concomitant]
     Active Substance: RIBAVIRIN
     Indication: PRODUCT USED FOR UNKNOWN INDICATION
     Route: 065
  6. SPIRAMYCIN [Concomitant]
     Active Substance: SPIRAMYCIN
     Indication: PRODUCT USED FOR UNKNOWN INDICATION
     Route: 065
  7. PANTOPRAZOL [PANTOPRAZOLE] [Concomitant]
     Active Substance: PANTOPRAZOLE
     Indication: PRODUCT USED FOR UNKNOWN INDICATION
     Route: 042
  8. FOSCAVIR [Concomitant]
     Active Substance: FOSCARNET SODIUM
     Indication: PRODUCT USED FOR UNKNOWN INDICATION
     Route: 065
  9. POSACONAZOLE [Concomitant]
     Active Substance: POSACONAZOLE
     Indication: PRODUCT USED FOR UNKNOWN INDICATION
     Route: 065
  10. BACTRIM [Concomitant]
     Active Substance: SULFAMETHOXAZOLE\TRIMETHOPRIM
     Indication: PRODUCT USED FOR UNKNOWN INDICATION
     Route: 065
  11. POTASSIUM CHLORIDE. [Concomitant]
     Active Substance: POTASSIUM CHLORIDE
     Indication: PRODUCT USED FOR UNKNOWN INDICATION
     Route: 065
  12. MIDAZOLAM HYDROCHLORIDE. [Concomitant]
     Active Substance: MIDAZOLAM HYDROCHLORIDE
     Indication: PRODUCT USED FOR UNKNOWN INDICATION
     Route: 042
  13. SUFENTANIL [Concomitant]
     Active Substance: SUFENTANIL
     Indication: PRODUCT USED FOR UNKNOWN INDICATION
     Route: 042
  14. MARIBAVIR [Suspect]
     Active Substance: MARIBAVIR
     Indication: CYTOMEGALOVIRUS INFECTION
     Dosage: 400 MG, UNK
     Route: 050
     Dates: start: 20181221, end: 20190118
  15. OSELTAMIVIR [Concomitant]
     Active Substance: OSELTAMIVIR
     Indication: PRODUCT USED FOR UNKNOWN INDICATION
     Route: 065
  16. NOREPINEPHRINE. [Concomitant]
     Active Substance: NOREPINEPHRINE
     Indication: PRODUCT USED FOR UNKNOWN INDICATION

REACTIONS (3)
  - Malaise [Unknown]
  - Respiratory distress [Unknown]
  - General physical health deterioration [Not Recovered/Not Resolved]

NARRATIVE: CASE EVENT DATE: 20190104
